FAERS Safety Report 15854398 (Version 1)
Quarter: 2019Q1

REPORT INFORMATION
  Report Type: Other
  Country: FR (occurrence: FR)
  Receive Date: 20190122
  Receipt Date: 20190122
  Transmission Date: 20190417
  Serious: Yes (Life-Threatening, Hospitalization)
  Sender: FDA-Public Use
  Company Number: FR-SERVIER-S19000289

PATIENT

DRUGS (6)
  1. TN UNSPECIFIED [Suspect]
     Active Substance: TROLNITRATE
     Indication: T-CELL TYPE ACUTE LEUKAEMIA
     Dosage: 10000 MG, UNKNOWN
     Route: 042
     Dates: start: 20180814, end: 20180815
  2. TN UNSPECIFIED [Suspect]
     Active Substance: TROLNITRATE
     Indication: T-CELL TYPE ACUTE LEUKAEMIA
     Dosage: 2 MG, UNKNOWN
     Route: 042
  3. NOXAFIL [Concomitant]
     Active Substance: POSACONAZOLE
     Indication: PRODUCT USED FOR UNKNOWN INDICATION
     Route: 065
  4. ONCASPAR [Suspect]
     Active Substance: PEGASPARGASE
     Indication: T-CELL TYPE ACUTE LEUKAEMIA
     Dosage: 3750 IU, QD
     Route: 042
  5. ELUDRIL [Concomitant]
     Indication: PRODUCT USED FOR UNKNOWN INDICATION
     Route: 065
  6. CHOLURSO [Concomitant]
     Active Substance: URSODIOL
     Indication: PRODUCT USED FOR UNKNOWN INDICATION
     Route: 065

REACTIONS (3)
  - Bone marrow failure [Recovered/Resolved]
  - Disseminated intravascular coagulation [Recovered/Resolved]
  - Septic shock [Recovered/Resolved]

NARRATIVE: CASE EVENT DATE: 20180817
